FAERS Safety Report 15466735 (Version 1)
Quarter: 2018Q4

REPORT INFORMATION
  Report Type: Spontaneous
  Country: DK (occurrence: DK)
  Receive Date: 20181005
  Receipt Date: 20181005
  Transmission Date: 20190204
  Serious: Yes (Hospitalization)
  Sender: FDA-Public Use
  Company Number: DK-TEVA-2018-DK-960674

PATIENT
  Age: 70 Year
  Sex: Female
  Weight: 94 kg

DRUGS (6)
  1. HJERTEMAGNYL [Concomitant]
     Active Substance: ASPIRIN\MAGNESIUM OXIDE
     Indication: ISCHAEMIC HEART DISEASE PROPHYLAXIS
     Dosage: 75 MILLIGRAM DAILY;
     Route: 048
     Dates: start: 2011
  2. MAGNESIA DAK [Concomitant]
     Indication: CONSTIPATION
     Dosage: STYRKE: 500 MG.
     Route: 048
     Dates: start: 2011
  3. UNIKALK MED D-VITAMIN [Concomitant]
     Indication: MINERAL SUPPLEMENTATION
     Dosage: DOSE: 1 TABLET DINNER AND EVENING. STRENGTH: UNKNOWN.
     Route: 048
     Dates: start: 20110321
  4. TOLTERODINTARTRAT TEVA (TOLTERODINE) [Suspect]
     Active Substance: TOLTERODINE TARTRATE
     Indication: URINARY INCONTINENCE
     Dosage: 4 MILLIGRAM DAILY;
     Route: 048
     Dates: start: 20180601, end: 20180827
  5. PANODIL [Concomitant]
     Active Substance: ACETAMINOPHEN
     Indication: PAIN
     Route: 048
     Dates: start: 2017
  6. NOVOMIX 30 FLEXPEN [Concomitant]
     Active Substance: INSULIN ASPART
     Indication: DIABETES MELLITUS
     Dosage: DOSIS: INDIVIDUELT. STYRKE: 100 E/ML.
     Route: 065
     Dates: start: 20100104

REACTIONS (4)
  - Dry mouth [Recovering/Resolving]
  - Fracture [Recovering/Resolving]
  - Fall [Recovered/Resolved]
  - Dizziness [Recovering/Resolving]

NARRATIVE: CASE EVENT DATE: 201806
